FAERS Safety Report 7371108-6 (Version None)
Quarter: 2011Q1

REPORT INFORMATION
  Report Type: 
  Country: None (occurrence: None)
  Receive Date: 20110324
  Receipt Date: 20110210
  Transmission Date: 20110831
  Serious: Yes (Hospitalization, Other)
  Sender: FDA-Public Use
  Company Number: US-BAYER-200943657NA

PATIENT
  Sex: Female
  Weight: 71 kg

DRUGS (9)
  1. YASMIN [Suspect]
     Indication: PREMENSTRUAL SYNDROME
     Dosage: 2002-2006, QD
     Route: 048
     Dates: start: 20020101, end: 20060101
  2. MEDROL [Concomitant]
     Dosage: UNK
     Route: 048
     Dates: start: 20030219
  3. YASMIN [Suspect]
     Indication: CONTRACEPTION
     Dosage: 2001
     Route: 048
     Dates: start: 20010101, end: 20010101
  4. SYNTHROID [Concomitant]
     Indication: GASTRITIS
     Route: 065
     Dates: start: 20010101
  5. NASACORT [Concomitant]
     Indication: PREMENSTRUAL SYNDROME
     Route: 065
     Dates: start: 20010101, end: 20100101
  6. YAZ [Suspect]
     Indication: CONTRACEPTION
     Dosage: 2007
     Route: 048
     Dates: start: 20070101, end: 20070101
  7. ADVIL LIQUI-GELS [Concomitant]
     Route: 065
  8. YAZ [Suspect]
     Indication: PREMENSTRUAL SYNDROME
     Dosage: 2007-2008 QD
     Route: 048
     Dates: start: 20070101, end: 20080701
  9. ATENOLOL [Concomitant]

REACTIONS (6)
  - BILIARY COLIC [None]
  - NAUSEA [None]
  - VOMITING [None]
  - CHOLELITHIASIS [None]
  - ABDOMINAL PAIN UPPER [None]
  - CHOLECYSTITIS CHRONIC [None]
